FAERS Safety Report 5677280-8 (Version None)
Quarter: 2008Q1

REPORT INFORMATION
  Report Type: 
  Country: None (occurrence: None)
  Receive Date: 20080324
  Receipt Date: 20080317
  Transmission Date: 20080703
  Serious: Yes (Life-Threatening, Hospitalization, Other)
  Sender: FDA-Public Use
  Company Number: JP-ABBOTT-08P-087-0442682-00

PATIENT
  Age: 3 Year
  Sex: Female
  Weight: 17.9 kg

DRUGS (5)
  1. CLARITHROMYCIN [Suspect]
     Indication: BRONCHITIS
     Route: 048
     Dates: start: 20071217, end: 20071220
  2. L-CARBOCISTEINE [Concomitant]
     Indication: DRUG USE FOR UNKNOWN INDICATION
     Route: 048
     Dates: start: 20071217
  3. DEXTROMETHORPHAN HYDROBROMIDE HYDRATE [Concomitant]
     Indication: DRUG USE FOR UNKNOWN INDICATION
     Route: 048
     Dates: start: 20071217
  4. CHLORPHENIRAMINE MALEATE [Concomitant]
     Indication: DRUG USE FOR UNKNOWN INDICATION
     Route: 048
     Dates: start: 20071217
  5. TULOBUTEROL [Concomitant]
     Indication: DRUG USE FOR UNKNOWN INDICATION
     Dosage: 1 SHEET
     Route: 048
     Dates: start: 20071217

REACTIONS (9)
  - ABDOMINAL PAIN [None]
  - ANAPHYLACTIC SHOCK [None]
  - COUGH [None]
  - DERMATITIS CONTACT [None]
  - DIARRHOEA [None]
  - LIMB DISCOMFORT [None]
  - LOSS OF CONSCIOUSNESS [None]
  - PALLOR [None]
  - VOMITING [None]
